FAERS Safety Report 5088356-0 (Version None)
Quarter: 2006Q3

REPORT INFORMATION
  Report Type: 
  Country: None (occurrence: None)
  Receive Date: 20060821
  Receipt Date: 20060809
  Transmission Date: 20061208
  Serious: Yes (Hospitalization)
  Sender: FDA-Public Use
  Company Number: MEDI-0004848

PATIENT
  Sex: Male

DRUGS (1)
  1. ETHYOL [Suspect]
     Dosage: SUBCUTANEOUS
     Route: 058

REACTIONS (4)
  - BACK PAIN [None]
  - CHILLS [None]
  - RASH [None]
  - VITAL FUNCTIONS ABNORMAL [None]
